FAERS Safety Report 8885383 (Version 2)
Quarter: 2012Q4

REPORT INFORMATION
  Report Type: 
  Country: US (occurrence: US)
  Receive Date: 20121101
  Receipt Date: 20121203
  Transmission Date: 20130627
  Serious: No
  Sender: FDA-Public Use
  Company Number: US-TEVA-365290USA

PATIENT
  Sex: Female

DRUGS (9)
  1. QNASL [Suspect]
     Dosage: 2 puffs bid
     Route: 048
     Dates: start: 20120918, end: 20121015
  2. BISOPROLOL FUMARATE [Concomitant]
  3. DIGOXIN [Concomitant]
  4. WARFARIN [Concomitant]
  5. LEVOTHYROXINE [Concomitant]
  6. CLARITIN [Concomitant]
  7. BENADRYL [Concomitant]
  8. ASA [Concomitant]
     Dosage: 325 Milligram Daily;
  9. PROAIR [Concomitant]

REACTIONS (5)
  - Arrhythmia [Unknown]
  - Urethritis noninfective [Unknown]
  - Tremor [Unknown]
  - Malaise [Unknown]
  - Drug interaction [Unknown]
